FAERS Safety Report 5002194-6 (Version None)
Quarter: 2006Q2

REPORT INFORMATION
  Report Type: 
  Country: None (occurrence: None)
  Receive Date: 20060510
  Receipt Date: 20060425
  Transmission Date: 20061013
  Serious: Yes (Other)
  Sender: FDA-Public Use
  Company Number: HP200600067

PATIENT
  Age: 61 Year
  Sex: Male

DRUGS (1)
  1. EXACTACAIN (BENZOCAINE, TETRACAINE HYDROCHLORIDE, BUTAMBEN) [Suspect]
     Indication: INTUBATION
     Dosage: 3 SPRAYS, SINGLE DOSE, ORAL
     Route: 048
     Dates: start: 20060301, end: 20060301

REACTIONS (3)
  - DEVICE MALFUNCTION [None]
  - ENDOTRACHEAL INTUBATION COMPLICATION [None]
  - FOREIGN BODY TRAUMA [None]
